FAERS Safety Report 7803129-0 (Version None)
Quarter: 2011Q4

REPORT INFORMATION
  Report Type: 
  Country: None (occurrence: None)
  Receive Date: 20111007
  Receipt Date: 20110929
  Transmission Date: 20120403
  Serious: Yes (Other)
  Sender: FDA-Public Use
  Company Number: PHHY2011US63962

PATIENT
  Sex: Female

DRUGS (17)
  1. CALCIUM CARBONATE [Concomitant]
     Dosage: UNK UKN, UNK
  2. RECLAST [Suspect]
     Indication: OSTEOPOROSIS
     Dosage: 5 MG, 1 YEAR
     Route: 042
  3. NAPROXEN SODIUM [Concomitant]
     Dosage: UNK UKN, UNK
  4. BION TEARS [Concomitant]
     Dosage: UNK UKN, UNK
  5. PATANOL [Concomitant]
     Dosage: UNK UKN, UNK
  6. MECLIZINE [Concomitant]
     Dosage: UNK UKN, UNK
  7. SOMA [Concomitant]
     Dosage: UNK UKN, UNK
  8. CALCIUM CARBONATE [Concomitant]
     Dosage: UNK UKN, UNK
  9. ASCORBIC ACID [Concomitant]
     Dosage: UNK UKN, UNK
  10. ASPIRIN [Concomitant]
     Dosage: UNK UKN, UNK
  11. LIVERZYME [Concomitant]
     Dosage: UNK UKN, UNK
  12. LIBRAX [Concomitant]
     Dosage: UNK UKN, UNK
  13. LEVSIN [Concomitant]
     Dosage: UNK UKN, UNK
  14. BENADRYL [Concomitant]
     Dosage: UNK UKN, UNK
  15. BISMUTH SUBSALICYLATE [Concomitant]
     Dosage: UNK UKN, UNK
  16. ACETAMINOPHEN [Concomitant]
     Dosage: UNK UKN, UNK
  17. MUCINEX [Concomitant]
     Dosage: UNK UKN, UNK

REACTIONS (5)
  - BONE PAIN [None]
  - INTERVERTEBRAL DISC PROTRUSION [None]
  - SPINAL DISORDER [None]
  - HYPOTHYROIDISM [None]
  - LUMBAR SPINAL STENOSIS [None]
